FAERS Safety Report 5537234-9 (Version None)
Quarter: 2007Q4

REPORT INFORMATION
  Report Type: 
  Country: None (occurrence: None)
  Receive Date: 20071207
  Receipt Date: 20071129
  Transmission Date: 20080405
  Serious: Yes (Other)
  Sender: FDA-Public Use
  Company Number: US-ROCHE-522918

PATIENT
  Age: 58 Year
  Sex: Female

DRUGS (2)
  1. PEG-INTERFERON A-2A (RO 25-8310) [Suspect]
     Route: 065
     Dates: start: 20070820, end: 20070920
  2. RIBAVIRIN [Suspect]
     Route: 065
     Dates: start: 20070820, end: 20070920

REACTIONS (1)
  - PULMONARY OEDEMA [None]
